FAERS Safety Report 12655857 (Version 1)
Quarter: 2016Q3

REPORT INFORMATION
  Report Type: Spontaneous
  Country: US (occurrence: US)
  Receive Date: 20160816
  Receipt Date: 20160816
  Transmission Date: 20161109
  Serious: No
  Sender: FDA-Public Use
  Company Number: US-PFIZER INC-2016386706

PATIENT
  Age: 57 Year
  Sex: Female
  Weight: 69 kg

DRUGS (5)
  1. IBRANCE [Suspect]
     Active Substance: PALBOCICLIB
     Indication: METASTASES TO LUNG
     Dosage: 125 MG, UNK
     Route: 048
     Dates: start: 201607
  2. OXYCODONE [Concomitant]
     Active Substance: OXYCODONE
     Dosage: 10 MG, AS NEEDED, PRN
     Route: 048
  3. WARFARIN [Concomitant]
     Active Substance: WARFARIN
     Dosage: UNK
     Dates: start: 2013
  4. AMBIEN [Concomitant]
     Active Substance: ZOLPIDEM TARTRATE
     Dosage: 10 MG, AS NEEDED, PRN
     Route: 048
  5. FEMARA [Suspect]
     Active Substance: LETROZOLE
     Indication: BREAST CANCER METASTATIC
     Dosage: ONCE IN MORNING

REACTIONS (12)
  - Heart rate increased [Unknown]
  - Discomfort [Unknown]
  - Disease progression [Unknown]
  - Haemoglobin decreased [Unknown]
  - Headache [Unknown]
  - Pyrexia [Recovered/Resolved]
  - Fatigue [Unknown]
  - Chills [Unknown]
  - Bone pain [Unknown]
  - Night sweats [Unknown]
  - Hyperhidrosis [Unknown]
  - Breast cancer metastatic [Unknown]

NARRATIVE: CASE EVENT DATE: 201607
